FAERS Safety Report 5330719-X (Version None)
Quarter: 2007Q2

REPORT INFORMATION
  Report Type: 
  Country: None (occurrence: None)
  Receive Date: 20070522
  Receipt Date: 20070514
  Transmission Date: 20071010
  Serious: Yes (Other)
  Sender: FDA-Public Use
  Company Number: PHEH2007US06867

PATIENT
  Sex: Female

DRUGS (1)
  1. ZELNORM [Suspect]
     Indication: CONSTIPATION
     Dosage: 6 MG, BID
     Dates: start: 20070325, end: 20070415

REACTIONS (9)
  - ASTHENIA [None]
  - CARDIAC DISORDER [None]
  - CHEST PAIN [None]
  - DYSPNOEA [None]
  - FATIGUE [None]
  - HEART RATE INCREASED [None]
  - NAUSEA [None]
  - VOMITING [None]
  - WEIGHT DECREASED [None]
